FAERS Safety Report 7445129-9 (Version None)
Quarter: 2011Q2

REPORT INFORMATION
  Report Type: 
  Country: None (occurrence: None)
  Receive Date: 20110429
  Receipt Date: 20110422
  Transmission Date: 20111010
  Serious: Yes (Hospitalization, Other)
  Sender: FDA-Public Use
  Company Number: FR-PFIZER INC-2011061347

PATIENT
  Age: 49 Year
  Sex: Male
  Weight: 74.83 kg

DRUGS (9)
  1. CRESTOR [Concomitant]
     Indication: DYSLIPIDAEMIA
     Dosage: 5 MG, ALTERNATE DAY
     Route: 048
  2. EZETIMIBE [Concomitant]
     Indication: DYSLIPIDAEMIA
     Dosage: 1 DF, 1X/DAY
     Route: 048
  3. FEBUXOSTAT [Concomitant]
     Indication: HYPERURICAEMIA
     Dosage: 80 MG, 1X/DAY
     Route: 048
  4. RHINOFLUIMUCIL [Suspect]
     Indication: RHINITIS
     Dosage: UNK
     Route: 045
  5. XANAX [Concomitant]
     Indication: ANXIETY
     Dosage: 0.5 DF, 1X/DAY
     Route: 048
  6. HUMEX [Suspect]
     Dosage: UNK
     Route: 048
  7. RELPAX [Concomitant]
     Indication: MIGRAINE
     Dosage: UNK
     Route: 048
  8. AVLOCARDYL [Concomitant]
     Indication: MIGRAINE
     Dosage: 10 MG, 2X/DAY, AS NEEDED
     Route: 048
  9. RHINADVIL [Suspect]
     Indication: RHINITIS
     Dosage: UNK
     Route: 065

REACTIONS (4)
  - CHEST PAIN [None]
  - TRANSIENT ISCHAEMIC ATTACK [None]
  - STRESS [None]
  - CARDIOMYOPATHY [None]
